FAERS Safety Report 5215518-1 (Version None)
Quarter: 2007Q1

REPORT INFORMATION
  Report Type: 
  Country: None (occurrence: None)
  Receive Date: 20070123
  Receipt Date: 20070119
  Transmission Date: 20070707
  Serious: Yes (Death, Other)
  Sender: FDA-Public Use
  Company Number: PHBS2007JP00760

PATIENT
  Age: 85 Year
  Sex: Female

DRUGS (3)
  1. TEGRETOL [Suspect]
     Indication: CANCER PAIN
     Dosage: 400 MG/DAY
     Route: 048
     Dates: start: 20061226
  2. TEGRETOL [Suspect]
     Dosage: 100 MG/DAY
     Route: 048
     Dates: start: 20061207, end: 20061217
  3. TEGRETOL [Suspect]
     Dosage: 200 MG/DAY
     Route: 048
     Dates: start: 20061218, end: 20061225

REACTIONS (5)
  - BRADYCARDIA [None]
  - CONVULSION [None]
  - DEATH [None]
  - OVERDOSE [None]
  - VOMITING [None]
